FAERS Safety Report 7073831-X (Version None)
Quarter: 2010Q4

REPORT INFORMATION
  Report Type: 
  Country: None (occurrence: None)
  Receive Date: 20101029
  Receipt Date: 20100820
  Transmission Date: 20110411
  Serious: No
  Sender: FDA-Public Use
  Company Number: A0876995A

PATIENT
  Age: 81 Year
  Sex: Male

DRUGS (9)
  1. ADVAIR DISKUS 100/50 [Suspect]
     Indication: ASTHMA
     Dosage: 1BLS TWICE PER DAY
     Route: 055
  2. ZYLOPRIM [Concomitant]
  3. UNSPECIFIED MEDICATION [Concomitant]
  4. IMDUR [Concomitant]
  5. ISOPROPAL [Concomitant]
  6. VASOTEC [Concomitant]
  7. KLONOPIN [Concomitant]
  8. ZOLOFT [Concomitant]
  9. AMBIEN [Concomitant]

REACTIONS (2)
  - SPUTUM RETENTION [None]
  - THROAT IRRITATION [None]
